FAERS Safety Report 25576321 (Version 2)
Quarter: 2025Q3

REPORT INFORMATION
  Report Type: Spontaneous
  Country: EU (occurrence: EU)
  Receive Date: 20250718
  Receipt Date: 20250813
  Transmission Date: 20251020
  Serious: Yes (Other)
  Sender: ROVIPHARM SAS
  Company Number: EU-Orion Corporation ORION PHARMA-DEPR2025-0007

PATIENT
  Age: 78 Year
  Sex: Male

DRUGS (7)
  1. RISPERIDONE [Suspect]
     Active Substance: RISPERIDONE
     Indication: Restlessness
  2. VALPROIC ACID [Suspect]
     Active Substance: VALPROIC ACID
     Indication: Aggression
     Dates: start: 202505, end: 20250708
  3. OXAZEPAM [Suspect]
     Active Substance: OXAZEPAM
     Indication: Product use in unapproved indication
  4. ELIQUIS [Concomitant]
     Active Substance: APIXABAN
  5. DIGOXIN [Concomitant]
     Active Substance: DIGOXIN
  6. SERETIDE [FLUTICASONE PROPIONATE~~SALMETEROL XINAFOATE] [Concomitant]
  7. ORLOC [BISOPROLOL FUMARATE] [Concomitant]

REACTIONS (7)
  - Suicidal ideation [Recovered/Resolved]
  - Suicide attempt [Recovered/Resolved]
  - Product use in unapproved indication [Unknown]
  - Peripheral swelling [Recovered/Resolved]
  - Emotional distress [Recovered/Resolved]
  - Sedation [Recovered/Resolved]
  - Confusional state [Recovered/Resolved]

NARRATIVE: CASE EVENT DATE: 20250101
